FAERS Safety Report 9903368 (Version 2)
Quarter: 2014Q1

REPORT INFORMATION
  Report Type: Spontaneous
  Country: US (occurrence: US)
  Receive Date: 20140217
  Receipt Date: 20140217
  Transmission Date: 20141002
  Serious: No
  Sender: FDA-Public Use
  Company Number: US-GILEAD-2011-0046244

PATIENT
  Age: 59 Year
  Sex: Female

DRUGS (2)
  1. LETAIRIS [Suspect]
     Indication: PRODUCT USED FOR UNKNOWN INDICATION
     Dosage: 10 MG, UNK
     Route: 048
  2. EPOPROSTENOL [Concomitant]

REACTIONS (6)
  - Hypotension [Unknown]
  - Pain in jaw [Unknown]
  - Head discomfort [Unknown]
  - Pain [Not Recovered/Not Resolved]
  - Dermatitis [Unknown]
  - Abdominal pain [Unknown]
